FAERS Safety Report 6578066-2 (Version None)
Quarter: 2010Q1

REPORT INFORMATION
  Report Type: 
  Country: None (occurrence: None)
  Receive Date: 20100211
  Receipt Date: 20100127
  Transmission Date: 20100710
  Serious: Yes (Other)
  Sender: FDA-Public Use
  Company Number: US-CELGENEUS-163-C5013-10011016

PATIENT
  Sex: Female

DRUGS (2)
  1. CC-5013 [Suspect]
     Route: 048
     Dates: start: 20100104, end: 20100111
  2. PERCOCET [Concomitant]
     Route: 065
     Dates: start: 20100101

REACTIONS (1)
  - TUMOUR FLARE [None]
